FAERS Safety Report 23294182 (Version 1)
Quarter: 2023Q4

REPORT INFORMATION
  Report Type: Spontaneous
  Country: US (occurrence: US)
  Receive Date: 20231213
  Receipt Date: 20231213
  Transmission Date: 20240109
  Serious: No
  Sender: FDA-Public Use
  Company Number: US-PFIZER INC-202300433658

PATIENT
  Age: 58 Year

DRUGS (1)
  1. XELJANZ [Suspect]
     Active Substance: TOFACITINIB CITRATE
     Dosage: UNKNOWN

REACTIONS (2)
  - Abdominal pain upper [Unknown]
  - Gastrooesophageal reflux disease [Not Recovered/Not Resolved]
